FAERS Safety Report 5269167-X (Version None)
Quarter: 2007Q1

REPORT INFORMATION
  Report Type: 
  Country: None (occurrence: None)
  Receive Date: 20070319
  Receipt Date: 20070312
  Transmission Date: 20070707
  Serious: Yes (Other)
  Sender: FDA-Public Use
  Company Number: US-ROXANE LABORATORIES, INC-2007-BP-03512RO

PATIENT
  Age: 63 Year
  Sex: Male
  Weight: 118 kg

DRUGS (5)
  1. LITHIUM CARBONATE [Suspect]
     Indication: BIPOLAR DISORDER
     Dosage: 450 MG DAILY
  2. VALSARTAN [Concomitant]
  3. BUPROPION HCL [Concomitant]
  4. IMIPRAMINE [Concomitant]
  5. ALBUTEROL [Concomitant]
     Indication: ASTHMA

REACTIONS (3)
  - HYPERCALCAEMIA [None]
  - HYPERPARATHYROIDISM [None]
  - RENAL FAILURE CHRONIC [None]
